FAERS Safety Report 7402406-5 (Version None)
Quarter: 2011Q2

REPORT INFORMATION
  Report Type: 
  Country: None (occurrence: None)
  Receive Date: 20110408
  Receipt Date: 20110404
  Transmission Date: 20111010
  Serious: Yes (Hospitalization)
  Sender: FDA-Public Use
  Company Number: US-BRISTOL-MYERS SQUIBB COMPANY-15586365

PATIENT
  Sex: Female

DRUGS (1)
  1. AVALIDE TABS 300 MG/25 MG [Suspect]
     Dosage: 1 DF=300/25MG

REACTIONS (2)
  - HIP ARTHROPLASTY [None]
  - HYPERTENSION [None]
